FAERS Safety Report 5276412-3 (Version None)
Quarter: 2007Q1

REPORT INFORMATION
  Report Type: 
  Country: None (occurrence: None)
  Receive Date: 20061213
  Receipt Date: 20030926
  Transmission Date: 20070707
  Serious: Yes (Hospitalization)
  Sender: FDA-Public Use
  Company Number: 2003UW12374

PATIENT
  Age: 51 Year
  Sex: Female

DRUGS (19)
  1. SEROQUEL [Suspect]
  2. DILANTIN [Concomitant]
  3. OMEPRAZOLE, AMOXICILLIN, METRONIDAZOLE [Concomitant]
  4. COZAAR [Concomitant]
  5. CATAPRES [Concomitant]
  6. SKELAXIN [Concomitant]
  7. PAXIL [Concomitant]
  8. RISPERDAL [Concomitant]
  9. TRICOR [Concomitant]
  10. HYDROCHLOROTHIAZIDE [Concomitant]
  11. NEURONTIN [Concomitant]
  12. CELEBREX [Concomitant]
  13. BISOPROLOL [Concomitant]
  14. PREVACID [Concomitant]
  15. K-DUR 10 [Concomitant]
  16. CLIMARA [Concomitant]
  17. OXYBUTYNIN CHLORIDE [Concomitant]
  18. PROPOXYPHENE NAPSYLATE [Concomitant]
  19. ZANAFLEX [Concomitant]

REACTIONS (1)
  - PANCREATITIS [None]
